FAERS Safety Report 4454326-6 (Version None)
Quarter: 2004Q3

REPORT INFORMATION
  Report Type: 
  Country: None (occurrence: None)
  Receive Date: 20040916
  Receipt Date: 20040916
  Transmission Date: 20050211
  Serious: Yes (Other)
  Sender: FDA-Public Use
  Company Number: None

PATIENT
  Age: 81 Year
  Sex: Female

DRUGS (1)
  1. PENTOTHAL [Suspect]
     Indication: ELECTROCONVULSIVE THERAPY
     Dosage: 175 MG; 100 MG
     Dates: start: 20040728

REACTIONS (2)
  - ANAESTHETIC COMPLICATION [None]
  - DRUG EFFECT DECREASED [None]
